FAERS Safety Report 20512540 (Version 1)
Quarter: 2022Q1

REPORT INFORMATION
  Report Type: Spontaneous
  Country: US (occurrence: None)
  Receive Date: 20220223
  Receipt Date: 20220223
  Transmission Date: 20220423
  Serious: Yes (Death)
  Sender: FDA-Public Use
  Company Number: None

PATIENT
  Age: 63 Year
  Sex: Male

DRUGS (1)
  1. APIXABAN [Suspect]
     Active Substance: APIXABAN

REACTIONS (7)
  - Dyspnoea [None]
  - Oedema [None]
  - Gastrointestinal haemorrhage [None]
  - Melaena [None]
  - Haemoglobin decreased [None]
  - Shock haemorrhagic [None]
  - General physical health deterioration [None]

NARRATIVE: CASE EVENT DATE: 20210901
